FAERS Safety Report 21034913 (Version 1)
Quarter: 2022Q3

REPORT INFORMATION
  Report Type: Report from Study
  Country: GR (occurrence: GR)
  Receive Date: 20220701
  Receipt Date: 20220701
  Transmission Date: 20221027
  Serious: Yes (Other)
  Sender: FDA-Public Use
  Company Number: GR-JNJFOC-20220639301

PATIENT
  Sex: Male
  Weight: 75 kg

DRUGS (12)
  1. EPOPROSTENOL SODIUM [Suspect]
     Active Substance: EPOPROSTENOL SODIUM
     Indication: Pulmonary hypertension
     Route: 042
     Dates: start: 20220519, end: 20220602
  2. RIOCIGUAT [Concomitant]
     Active Substance: RIOCIGUAT
     Indication: Pulmonary hypertension
     Route: 048
     Dates: start: 20211124, end: 20211214
  3. RIOCIGUAT [Concomitant]
     Active Substance: RIOCIGUAT
     Route: 048
     Dates: start: 20211214, end: 20220111
  4. RIOCIGUAT [Concomitant]
     Active Substance: RIOCIGUAT
     Route: 048
     Dates: start: 20220111, end: 20220208
  5. RIOCIGUAT [Concomitant]
     Active Substance: RIOCIGUAT
     Route: 048
     Dates: start: 20220208, end: 20220308
  6. RIOCIGUAT [Concomitant]
     Active Substance: RIOCIGUAT
     Route: 048
     Dates: start: 20220308
  7. AMBRISENTAN [Concomitant]
     Active Substance: AMBRISENTAN
     Indication: Pulmonary hypertension
     Route: 048
     Dates: start: 20211124
  8. LASIX [Concomitant]
     Active Substance: FUROSEMIDE
     Indication: Hypertension
     Route: 048
     Dates: start: 20201111
  9. PLAVIX [Concomitant]
     Active Substance: CLOPIDOGREL BISULFATE
     Indication: Coronary artery disease
     Route: 048
     Dates: start: 20201111
  10. LERCADIP [LERCANIDIPINE] [Concomitant]
     Indication: Hypertension
     Route: 048
     Dates: start: 20151111
  11. NEBIVOLOL [Concomitant]
     Active Substance: NEBIVOLOL
     Indication: Hypertension
     Route: 048
     Dates: start: 20211111
  12. DOBUTAMINE [Concomitant]
     Active Substance: DOBUTAMINE HYDROCHLORIDE
     Route: 042

REACTIONS (2)
  - Renal impairment [Recovered/Resolved]
  - Hypotension [Recovered/Resolved]

NARRATIVE: CASE EVENT DATE: 20220523
